FAERS Safety Report 9639081 (Version 1)
Quarter: 2013Q4

REPORT INFORMATION
  Report Type: Spontaneous
  Country: TR (occurrence: TR)
  Receive Date: 20131022
  Receipt Date: 20131022
  Transmission Date: 20140711
  Serious: Yes (Hospitalization)
  Sender: FDA-Public Use
  Company Number: TR-BAYER-2013-125017

PATIENT
  Age: 60 Year
  Sex: Male

DRUGS (2)
  1. ACETYLSALICYLIC ACID (} 100 MG) [Suspect]
     Indication: ARTHRALGIA
     Dosage: 5 TABLETS, MIXED WITH WHITE VINEGAR AND APPLIED VIA BANDAGE IMPREGNATED WITH THE MIXTURE
     Route: 061
  2. ACETIC ACID [Suspect]
     Indication: ARTHRALGIA
     Dosage: UNK
     Route: 061

REACTIONS (3)
  - Chemical burn of skin [Recovered/Resolved]
  - Wrong technique in drug usage process [None]
  - Incorrect route of drug administration [None]
